FAERS Safety Report 4773119-3 (Version None)
Quarter: 2005Q3

REPORT INFORMATION
  Report Type: 
  Country: None (occurrence: None)
  Receive Date: 20050915
  Receipt Date: 20050915
  Transmission Date: 20060218
  Serious: Yes (Hospitalization)
  Sender: FDA-Public Use
  Company Number: None

PATIENT
  Age: 60 Year
  Sex: Male
  Weight: 80 kg

DRUGS (10)
  1. WARFARIN     2.5MG [Suspect]
     Indication: AORTIC VALVE REPLACEMENT
     Dosage: 2.5MG DAILY EXCEPT 3MF T/FRI     PO
     Route: 048
     Dates: start: 20030701, end: 20050910
  2. GATIFLOXICIN    400MG [Suspect]
     Indication: INFECTION
     Dosage: 400MG   QDAY   PO
     Route: 048
     Dates: start: 20050727, end: 20050803
  3. CARBAMIDE PEROXIDE [Concomitant]
  4. BETAMETHASONE DIPROPIONATE [Concomitant]
  5. CALCIPOTRIENE [Concomitant]
  6. GEMFIBROZIL [Concomitant]
  7. HYDROCHLOROTHIAZIDE [Concomitant]
  8. IPRATROPIUM BROMIDE [Concomitant]
  9. LISINOPRIL [Concomitant]
  10. METOPROLOL TARTRATE [Concomitant]

REACTIONS (5)
  - HAEMATOCRIT DECREASED [None]
  - HAEMOGLOBIN DECREASED [None]
  - HAEMORRHAGE [None]
  - INTERNATIONAL NORMALISED RATIO INCREASED [None]
  - MELAENA [None]
